FAERS Safety Report 8564812-5 (Version None)
Quarter: 2012Q3

REPORT INFORMATION
  Report Type: 
  Country: None (occurrence: None)
  Receive Date: 20120803
  Receipt Date: 20120703
  Transmission Date: 20120928
  Serious: No
  Sender: FDA-Public Use
  Company Number: US-009507513-1207USA001114

PATIENT

DRUGS (13)
  1. MORPHINE SULFATE [Concomitant]
  2. DILAUDID [Concomitant]
  3. DICLOFENAC SODIUM [Concomitant]
  4. LACTULOSE [Concomitant]
  5. PREDNISOLONE ACETATE [Concomitant]
  6. HYDROCODONE BITARTRATE [Concomitant]
  7. AZASITE [Suspect]
     Indication: CATARACT OPERATION
     Dosage: 1 DF, QD
     Route: 047
     Dates: start: 20120606
  8. ZOCOR [Concomitant]
  9. FOSINOPRIL SODIUM [Concomitant]
  10. BUPROPION HYDROCHLORIDE [Concomitant]
  11. PROVIGIL [Concomitant]
  12. VESICARE [Concomitant]
  13. ZELAPAR [Concomitant]

REACTIONS (2)
  - EYE IRRITATION [None]
  - OFF LABEL USE [None]
